FAERS Safety Report 5191994-8 (Version None)
Quarter: 2006Q4

REPORT INFORMATION
  Report Type: 
  Country: None (occurrence: None)
  Receive Date: 20061220
  Receipt Date: 20061204
  Transmission Date: 20070319
  Serious: Yes (Life-Threatening, Hospitalization)
  Sender: FDA-Public Use
  Company Number: 2006AL003803

PATIENT
  Age: 66 Year
  Sex: Female

DRUGS (5)
  1. MELOXICAM [Suspect]
     Indication: ARTHRALGIA
     Dosage: 15 MG;QD;PO
     Route: 048
     Dates: start: 20061018
  2. CLOPIDOGREL [Concomitant]
  3. DILTIAZEM HCL [Concomitant]
  4. SIMVASTATIN [Concomitant]
  5. LEVOTHYROXINE SODIUM [Concomitant]

REACTIONS (2)
  - DUODENAL PERFORATION [None]
  - DUODENAL ULCER HAEMORRHAGE [None]
